FAERS Safety Report 8608866-6 (Version None)
Quarter: 2012Q3

REPORT INFORMATION
  Report Type: 
  Country: None (occurrence: None)
  Receive Date: 20120821
  Receipt Date: 20120112
  Transmission Date: 20120928
  Serious: Yes (Other)
  Sender: FDA-Public Use
  Company Number: US-ROCHE-1101421

PATIENT
  Sex: Male

DRUGS (4)
  1. HEPARIN [Concomitant]
  2. NORVASC [Concomitant]
  3. LOPRESSOR [Concomitant]
  4. ACTIVASE [Suspect]
     Indication: MYOCARDIAL INFARCTION
     Dates: start: 19950212

REACTIONS (1)
  - OEDEMA PERIPHERAL [None]
